FAERS Safety Report 7999469-5 (Version None)
Quarter: 2011Q4

REPORT INFORMATION
  Report Type: 
  Country: None (occurrence: None)
  Receive Date: 20111221
  Receipt Date: 20111219
  Transmission Date: 20120403
  Serious: No
  Sender: FDA-Public Use
  Company Number: US-PFIZER INC-2011308234

PATIENT
  Sex: Female
  Weight: 58.957 kg

DRUGS (4)
  1. DETROL LA [Suspect]
     Indication: URINARY INCONTINENCE
     Dosage: 4 MG, AS NEEDED
     Route: 048
     Dates: start: 20030101
  2. LISINOPRIL [Concomitant]
     Indication: HYPERTENSION
     Dosage: 20 MG, UNK
  3. BACLOFEN [Concomitant]
     Indication: NEUROPATHY PERIPHERAL
     Dosage: 10 MG, UNK
  4. DETROL LA [Suspect]
     Dosage: 4 MG, AS NEEDED
     Route: 048
     Dates: start: 20111209, end: 20111219

REACTIONS (2)
  - POLLAKIURIA [None]
  - DRUG INEFFECTIVE [None]
